FAERS Safety Report 20744477 (Version 3)
Quarter: 2022Q3

REPORT INFORMATION
  Report Type: Spontaneous
  Country: JP (occurrence: JP)
  Receive Date: 20220425
  Receipt Date: 20220902
  Transmission Date: 20221027
  Serious: No
  Sender: FDA-Public Use
  Company Number: JP-GLAXOSMITHKLINE-JP2022JPN066509

PATIENT

DRUGS (14)
  1. SOTROVIMAB [Suspect]
     Active Substance: SOTROVIMAB
     Indication: COVID-19
     Dosage: 500 MG/DAY
     Route: 042
     Dates: start: 20220326, end: 20220326
  2. LEVOTHYROXINE SODIUM [Suspect]
     Active Substance: LEVOTHYROXINE SODIUM
     Indication: Hypothyroidism
     Dosage: 12.5-25 MCG/DAY
     Route: 048
  3. XYZAL [Suspect]
     Active Substance: LEVOCETIRIZINE DIHYDROCHLORIDE
     Indication: Seasonal allergy
     Dosage: 5 MG/DAY
     Route: 048
     Dates: start: 20220422
  4. OXICONAZOLE NITRATE [Suspect]
     Active Substance: OXICONAZOLE NITRATE
     Indication: Bacterial vulvovaginitis
     Dosage: 600 MG/DAY
     Dates: start: 20220322, end: 20220322
  5. TEPRENONE [Suspect]
     Active Substance: TEPRENONE
     Indication: Gastritis
     Dosage: 150 MG/DAY
     Route: 048
     Dates: start: 20220518
  6. POLARAMINE [Suspect]
     Active Substance: DEXCHLORPHENIRAMINE MALEATE
     Indication: Seasonal allergy
     Dosage: 6 MG/DAY
     Route: 048
     Dates: start: 20220126, end: 20220321
  7. CALONAL [Suspect]
     Active Substance: ACETAMINOPHEN
     Indication: Headache
     Dosage: 400 MG/DOSE, WHEN HAVING PAIN
     Route: 048
     Dates: start: 20220210
  8. CLARITIN REDITABS [Suspect]
     Active Substance: LORATADINE
     Indication: Seasonal allergy
     Dosage: 10 MG/DAY
     Route: 048
     Dates: start: 20220322
  9. DOMIPHEN BROMIDE [Suspect]
     Active Substance: DOMIPHEN BROMIDE
     Indication: Oropharyngeal pain
     Dosage: UNK
     Dates: start: 20220325
  10. CARBOCYSTEINE [Suspect]
     Active Substance: CARBOCYSTEINE
     Indication: Productive cough
     Dosage: 1500 MG
     Route: 048
     Dates: start: 20220325
  11. CLARITHROMYCIN [Suspect]
     Active Substance: CLARITHROMYCIN
     Indication: Seasonal allergy
     Dosage: 10 MG/DAY
     Route: 048
     Dates: start: 20220331
  12. CROMOLYN SODIUM [Suspect]
     Active Substance: CROMOLYN SODIUM
     Indication: Seasonal allergy
     Dosage: UNK
     Dates: start: 20220422
  13. DIETARY SUPPLEMENT\PROBIOTICS [Suspect]
     Active Substance: DIETARY SUPPLEMENT\PROBIOTICS
     Indication: Gastritis
     Dosage: 3 DF/DAY
     Route: 048
     Dates: start: 20220518
  14. HEPARIN SODIUM [Suspect]
     Active Substance: HEPARIN SODIUM
     Indication: Thrombosis prophylaxis
     Dosage: 9.41 ML/DAY
     Route: 042
     Dates: start: 20220325, end: 20220331

REACTIONS (2)
  - Forceps delivery [Unknown]
  - Exposure during pregnancy [Unknown]

NARRATIVE: CASE EVENT DATE: 20220816
